FAERS Safety Report 6674810-4 (Version None)
Quarter: 2010Q2

REPORT INFORMATION
  Report Type: 
  Country: None (occurrence: None)
  Receive Date: 20100409
  Receipt Date: 20100330
  Transmission Date: 20101027
  Serious: Yes (Other)
  Sender: FDA-Public Use
  Company Number: SE-PFIZER INC-2010041419

PATIENT
  Age: 73 Year
  Sex: Female
  Weight: 73.923 kg

DRUGS (6)
  1. LIPITOR [Suspect]
     Dosage: 10 MG, UNK
     Dates: start: 20100204
  2. SELOKEN ZOC [Concomitant]
     Dosage: 100 MG, UNK
  3. VALSARTAN [Concomitant]
     Dosage: 80 MG, UNK
  4. ANASTROZOLE [Concomitant]
     Dosage: 1 MG, UNK
  5. TROMBYL [Concomitant]
     Dosage: 75 MG, UNK
  6. SPIRONOLACTONE [Concomitant]
     Dosage: 25 MG, UNK

REACTIONS (3)
  - GAIT DISTURBANCE [None]
  - MUSCLE SPASMS [None]
  - MYALGIA [None]
